FAERS Safety Report 7168733 (Version 4)
Quarter: 2014Q1

REPORT INFORMATION
  Report Type: Spontaneous
  Country: US (occurrence: US)
  Receive Date: 20091106
  Receipt Date: 20140221
  Transmission Date: 20141002
  Serious: Yes (Death, Hospitalization)
  Sender: FDA-Public Use
  Company Number: US-BAYER-200937488NA

PATIENT
  Age: 28 Year
  Sex: Female
  Weight: 73 kg

DRUGS (11)
  1. YASMIN [Suspect]
     Indication: ORAL CONTRACEPTION
     Dosage: UNK UNK, QD
     Dates: end: 20071015
  2. ALLEGRA-D 12 HOUR [Concomitant]
     Dosage: UNK UNK, BID
     Route: 048
  3. CEFZIL [Concomitant]
     Dosage: 250 MG, BID
     Route: 048
  4. LORTAB [Concomitant]
     Dosage: UNK
     Dates: end: 20071026
  5. MUCINEX [Concomitant]
     Dosage: UNK
     Dates: end: 20071026
  6. TETRACAIN [Concomitant]
     Dosage: UNK
     Dates: end: 20071026
  7. PLOGEL [Concomitant]
     Dosage: UNK
     Dates: end: 20071026
  8. PHENERGAN [Concomitant]
     Dosage: UNK
     Dates: end: 20071026
  9. PROMETHAZIN [Concomitant]
  10. AUGMENTIN [Concomitant]
     Dosage: 875 MG, BID
     Dates: start: 20070821
  11. PILOGEL [Concomitant]
     Dosage: UNK
     Dates: start: 20071026

REACTIONS (4)
  - Pulmonary embolism [Fatal]
  - Haemoptysis [Fatal]
  - Tonsillitis [None]
  - Oropharyngeal pain [None]
